FAERS Safety Report 6733858-1 (Version None)
Quarter: 2010Q2

REPORT INFORMATION
  Report Type: 
  Country: None (occurrence: None)
  Receive Date: 20100520
  Receipt Date: 20100512
  Transmission Date: 20101027
  Serious: Yes (Other)
  Sender: FDA-Public Use
  Company Number: JP-ROCHE-626897

PATIENT
  Sex: Female
  Weight: 59 kg

DRUGS (31)
  1. TOCILIZUMAB [Suspect]
     Indication: RHEUMATOID ARTHRITIS
     Route: 041
     Dates: start: 20080612, end: 20080612
  2. TOCILIZUMAB [Suspect]
     Route: 041
     Dates: start: 20080710, end: 20080710
  3. TOCILIZUMAB [Suspect]
     Route: 041
     Dates: start: 20080807, end: 20080807
  4. TOCILIZUMAB [Suspect]
     Route: 041
     Dates: start: 20080904, end: 20080904
  5. TOCILIZUMAB [Suspect]
     Route: 041
     Dates: start: 20081002, end: 20081002
  6. TOCILIZUMAB [Suspect]
     Route: 041
     Dates: start: 20081030, end: 20081030
  7. TOCILIZUMAB [Suspect]
     Route: 041
     Dates: start: 20081127, end: 20081127
  8. TOCILIZUMAB [Suspect]
     Route: 041
     Dates: start: 20081225, end: 20081225
  9. TOCILIZUMAB [Suspect]
     Route: 041
     Dates: start: 20090122, end: 20090122
  10. TOCILIZUMAB [Suspect]
     Route: 041
     Dates: start: 20090218
  11. VOLTAREN [Suspect]
     Indication: RHEUMATOID ARTHRITIS
     Dosage: FORM: SUSTAINED RELEASE CAPSULE
     Route: 048
  12. DEPO-MEDROL [Concomitant]
     Route: 014
     Dates: start: 20080327, end: 20080327
  13. DEPO-MEDROL [Concomitant]
     Route: 014
     Dates: start: 20080404, end: 20080404
  14. DEPO-MEDROL [Concomitant]
     Route: 014
     Dates: start: 20080424, end: 20080424
  15. DEPO-MEDROL [Concomitant]
     Route: 014
     Dates: start: 20080513, end: 20080513
  16. DEPO-MEDROL [Concomitant]
     Route: 014
     Dates: start: 20080612, end: 20080612
  17. DEPO-MEDROL [Concomitant]
     Route: 014
     Dates: start: 20080624, end: 20080624
  18. DEPO-MEDROL [Concomitant]
     Route: 014
     Dates: start: 20080710, end: 20080710
  19. DEPO-MEDROL [Concomitant]
     Route: 014
     Dates: start: 20080722, end: 20080722
  20. DEPO-MEDROL [Concomitant]
     Route: 014
     Dates: start: 20080807, end: 20080807
  21. DEPO-MEDROL [Concomitant]
     Route: 014
     Dates: start: 20080828, end: 20080828
  22. DEPO-MEDROL [Concomitant]
     Route: 014
     Dates: start: 20080904, end: 20080904
  23. DEPO-MEDROL [Concomitant]
     Route: 014
     Dates: start: 20081014, end: 20081014
  24. KELNAC [Concomitant]
     Route: 048
  25. NORVASC [Concomitant]
     Route: 048
  26. SELBEX [Concomitant]
     Route: 048
  27. THYRADIN [Concomitant]
     Route: 048
  28. URSO 250 [Concomitant]
     Route: 048
  29. OMEPRAL [Concomitant]
     Dosage: FORM: ENTERIC
     Route: 048
     Dates: end: 20081111
  30. OMEPRAL [Concomitant]
     Dosage: FORM: ENTERIC
     Route: 048
     Dates: start: 20081112, end: 20081225
  31. OMEPRAL [Concomitant]
     Dosage: FORM: ENTERIC
     Route: 048
     Dates: start: 20081226, end: 20090205

REACTIONS (7)
  - ABDOMINAL DISCOMFORT [None]
  - GASTRIC ULCER [None]
  - HELICOBACTER TEST POSITIVE [None]
  - PRURITUS [None]
  - PYREXIA [None]
  - RASH GENERALISED [None]
  - THROMBOCYTOPENIA [None]
